FAERS Safety Report 4326143-9 (Version None)
Quarter: 2004Q1

REPORT INFORMATION
  Report Type: 
  Country: None (occurrence: None)
  Receive Date: 20040324
  Receipt Date: 20040315
  Transmission Date: 20041129
  Serious: Yes (Hospitalization)
  Sender: FDA-Public Use
  Company Number: 2004018059

PATIENT
  Sex: Male

DRUGS (4)
  1. NEURONTIN [Suspect]
     Indication: ILL-DEFINED DISORDER
     Dosage: 800 MG (DAILY), ORAL
     Route: 048
  2. MORPHINE SULFATE [Concomitant]
  3. ALL OTHER THERAPEUTIC PRODUCTS [Concomitant]
  4. PIRETANIDE SODIUM (PIRETANIDE SODIUM) [Concomitant]

REACTIONS (2)
  - HEPATITIS CHOLESTATIC [None]
  - HEPATITIS TOXIC [None]
